FAERS Safety Report 6804039-8 (Version None)
Quarter: 2010Q2

REPORT INFORMATION
  Report Type: 
  Country: None (occurrence: None)
  Receive Date: 20100628
  Receipt Date: 20060815
  Transmission Date: 20101027
  Serious: Yes (Other)
  Sender: FDA-Public Use
  Company Number: US-PFIZER INC-2006089263

PATIENT
  Sex: Male
  Weight: 97.07 kg

DRUGS (7)
  1. SUTENT [Suspect]
     Indication: RENAL CELL CARCINOMA
     Route: 048
     Dates: start: 20060502, end: 20060628
  2. ALL OTHER THERAPEUTIC PRODUCTS [Concomitant]
     Route: 065
  3. LOVASTATIN [Concomitant]
     Route: 065
  4. HYDRALAZINE HCL [Concomitant]
     Route: 065
  5. OXYCODONE HCL [Concomitant]
     Route: 048
  6. TENORMIN [Concomitant]
     Route: 048
  7. PRAZOSIN HCL [Concomitant]
     Route: 048

REACTIONS (5)
  - DISEASE PROGRESSION [None]
  - OEDEMA [None]
  - RENAL CELL CARCINOMA [None]
  - RENAL FAILURE [None]
  - WEIGHT INCREASED [None]
